FAERS Safety Report 11012295 (Version 1)
Quarter: 2015Q2

REPORT INFORMATION
  Report Type: Spontaneous
  Country: US (occurrence: None)
  Receive Date: 20150407
  Receipt Date: 20150407
  Transmission Date: 20150821
  Serious: Yes (Hospitalization)
  Sender: FDA-Public Use
  Company Number: LH201400316

PATIENT
  Age: 31 Year
  Sex: Female

DRUGS (2)
  1. MAKENA [Suspect]
     Active Substance: HYDROXYPROGESTERONE CAPROATE
     Indication: PREMATURE LABOUR
     Route: 030
  2. PRENATAL VITAMINS (ASCORBIC ACID, BIOTIN, MINERALS NOS, VITAMIN D NOS) [Concomitant]

REACTIONS (2)
  - Off label use [None]
  - Asthma [None]

NARRATIVE: CASE EVENT DATE: 20140710
